FAERS Safety Report 6979724-8 (Version None)
Quarter: 2010Q3

REPORT INFORMATION
  Report Type: 
  Country: None (occurrence: None)
  Receive Date: 20100913
  Receipt Date: 20100909
  Transmission Date: 20110219
  Serious: Yes (Other)
  Sender: FDA-Public Use
  Company Number: US-BRISTOL-MYERS SQUIBB COMPANY-15278799

PATIENT
  Age: 84 Year
  Sex: Male

DRUGS (3)
  1. COUMADIN [Suspect]
     Route: 048
     Dates: start: 19950101, end: 20100801
  2. PACERONE [Suspect]
     Indication: CARDIAC DISORDER
     Dosage: FORM TABLET
     Route: 048
     Dates: start: 20100701
  3. ANTIHYPERTENSIVE [Concomitant]

REACTIONS (4)
  - CARDIAC ARREST [None]
  - HAEMATOMA [None]
  - HYPOTENSION [None]
  - MALAISE [None]
